FAERS Safety Report 11691998 (Version 1)
Quarter: 2015Q4

REPORT INFORMATION
  Report Type: Spontaneous
  Country: DE (occurrence: DE)
  Receive Date: 20151103
  Receipt Date: 20151103
  Transmission Date: 20160304
  Serious: Yes (Other)
  Sender: FDA-Public Use
  Company Number: DE-AMGEN-DEUSP2015114293

PATIENT
  Sex: Female

DRUGS (1)
  1. PROLIA [Suspect]
     Active Substance: DENOSUMAB
     Indication: OSTEOPOROSIS POSTMENOPAUSAL
     Dosage: 60 MG
     Route: 065

REACTIONS (3)
  - Musculoskeletal stiffness [Unknown]
  - Thoracic vertebral fracture [Unknown]
  - Eczema [Unknown]

NARRATIVE: CASE EVENT DATE: 201503
